FAERS Safety Report 4844205-4 (Version None)
Quarter: 2005Q4

REPORT INFORMATION
  Report Type: 
  Country: None (occurrence: None)
  Receive Date: 20051202
  Receipt Date: 20051128
  Transmission Date: 20060501
  Serious: Yes (Other)
  Sender: FDA-Public Use
  Company Number: US-GLAXOSMITHKLINE-A0583656A

PATIENT
  Age: 36 Year
  Sex: Male

DRUGS (11)
  1. VALTREX [Suspect]
     Dosage: 1G TWICE PER DAY
     Route: 048
     Dates: start: 20050601, end: 20051101
  2. LISINOPRIL [Concomitant]
  3. LANTUS [Concomitant]
  4. ZITHROMAX [Concomitant]
  5. NEURONTIN [Concomitant]
  6. BACTRIM [Concomitant]
  7. VIREAD [Concomitant]
  8. AVANDIA [Concomitant]
  9. UNKNOWN MEDICATION [Concomitant]
  10. LIPITOR [Concomitant]
  11. FLUOXETINE [Concomitant]

REACTIONS (3)
  - CYTOMEGALOVIRUS INFECTION [None]
  - DRUG INEFFECTIVE [None]
  - NECROTISING RETINITIS [None]
